FAERS Safety Report 22245914 (Version 1)
Quarter: 2023Q2

REPORT INFORMATION
  Report Type: Spontaneous
  Country: US (occurrence: US)
  Receive Date: 20230424
  Receipt Date: 20230424
  Transmission Date: 20230722
  Serious: No
  Sender: FDA-Public Use
  Company Number: US-VERTEX PHARMACEUTICALS-2021-009525

PATIENT
  Age: 18 Year
  Sex: Male

DRUGS (8)
  1. TRIKAFTA [Suspect]
     Active Substance: ELEXACAFTOR\IVACAFTOR\TEZACAFTOR
     Indication: Cystic fibrosis
     Dosage: 100MG ELEXA/ 50MG TEZA/ 75MG IVA ; 150MG IVA AT UNK FREQ
     Route: 048
     Dates: start: 20191119, end: 20210510
  2. TRIKAFTA [Suspect]
     Active Substance: ELEXACAFTOR\IVACAFTOR\TEZACAFTOR
     Dosage: 1 ORANGE TAB (100 MG ELEXA/ 50 MG TEZA/ 75 MG IVA) IN AM AND 1/2 BLUE TAB (75 MG IVA) IN PM
     Route: 048
     Dates: start: 20210529, end: 20210603
  3. TRIKAFTA [Suspect]
     Active Substance: ELEXACAFTOR\IVACAFTOR\TEZACAFTOR
     Dosage: 1 ORANGE TAB IN MORNING
     Route: 048
     Dates: start: 20210629
  4. SYMBICORT [Concomitant]
     Active Substance: BUDESONIDE\FORMOTEROL FUMARATE DIHYDRATE
  5. AZITHROMYCIN [Concomitant]
     Active Substance: AZITHROMYCIN
  6. CETIRIZINE [Concomitant]
     Active Substance: CETIRIZINE HYDROCHLORIDE
  7. XOPENEX [Concomitant]
     Active Substance: LEVALBUTEROL HYDROCHLORIDE
  8. CREON [Concomitant]
     Active Substance: PANCRELIPASE AMYLASE\PANCRELIPASE LIPASE\PANCRELIPASE PROTEASE

REACTIONS (5)
  - Anxiety [Recovered/Resolved]
  - Obsessive-compulsive disorder [Recovered/Resolved]
  - Anger [Recovered/Resolved]
  - Depressive symptom [Recovered/Resolved]
  - Cough [Unknown]

NARRATIVE: CASE EVENT DATE: 20191101
